FAERS Safety Report 17702696 (Version 2)
Quarter: 2020Q2

REPORT INFORMATION
  Report Type: Spontaneous
  Country: US (occurrence: US)
  Receive Date: 20200424
  Receipt Date: 20200429
  Transmission Date: 20200714
  Serious: Yes (Other)
  Sender: FDA-Public Use
  Company Number: US-ASTRAZENECA-2020SE53548

PATIENT
  Sex: Male
  Weight: 80.1 kg

DRUGS (1)
  1. BYDUREON BCISE [Suspect]
     Active Substance: EXENATIDE
     Indication: DIABETES MELLITUS
     Route: 065

REACTIONS (5)
  - Incorrect dose administered by device [Unknown]
  - Device malfunction [Unknown]
  - Injection site haemorrhage [Unknown]
  - Injection site mass [Recovered/Resolved]
  - Device leakage [Unknown]
